FAERS Safety Report 6417182-2 (Version None)
Quarter: 2009Q4

REPORT INFORMATION
  Report Type: 
  Country: None (occurrence: None)
  Receive Date: 20091028
  Receipt Date: 20091019
  Transmission Date: 20100525
  Serious: No
  Sender: FDA-Public Use
  Company Number: US-JNJFOC-20091006630

PATIENT
  Sex: Female
  Weight: 104.33 kg

DRUGS (4)
  1. DURAGESIC-100 [Suspect]
     Indication: PAIN
     Route: 062
  2. NEXIUM [Concomitant]
     Indication: GASTRIC DISORDER
     Route: 048
  3. PLAQUENIL [Concomitant]
     Indication: SYSTEMIC LUPUS ERYTHEMATOSUS
     Route: 048
  4. OXYCODONE [Concomitant]
     Indication: BREAKTHROUGH PAIN
     Dosage: 10/650 MG AS NEEDED
     Route: 048

REACTIONS (9)
  - DIZZINESS [None]
  - DRUG DOSE OMISSION [None]
  - INAPPROPRIATE SCHEDULE OF DRUG ADMINISTRATION [None]
  - MENTAL IMPAIRMENT [None]
  - NAUSEA [None]
  - PALPITATIONS [None]
  - PRODUCT QUALITY ISSUE [None]
  - PRURITUS [None]
  - THERAPY CESSATION [None]
